FAERS Safety Report 21454663 (Version 1)
Quarter: 2022Q4

REPORT INFORMATION
  Report Type: Spontaneous
  Country: None (occurrence: US)
  Receive Date: 20221013
  Receipt Date: 20221013
  Transmission Date: 20230113
  Serious: No
  Sender: FDA-Public Use
  Company Number: US-Armstrong Pharmaceuticals, Inc.-2133798

PATIENT
  Sex: Male

DRUGS (1)
  1. PRIMATENE MIST [Suspect]
     Active Substance: EPINEPHRINE
     Indication: Product used for unknown indication
     Route: 055

REACTIONS (3)
  - Nausea [Unknown]
  - Dizziness [Unknown]
  - Tremor [Unknown]
